FAERS Safety Report 6836265-6 (Version None)
Quarter: 2010Q3

REPORT INFORMATION
  Report Type: 
  Country: None (occurrence: None)
  Receive Date: 20100713
  Receipt Date: 20100309
  Transmission Date: 20110219
  Serious: No
  Sender: FDA-Public Use
  Company Number: US-TYCO HEALTHCARE/MALLINCKRODT-T201000788

PATIENT
  Sex: Male

DRUGS (5)
  1. OXYCODONE HCL [Suspect]
     Indication: BACK PAIN
     Dosage: 10 MG, TID. PRN
     Route: 048
     Dates: start: 20080601
  2. OXYCODONE HCL [Suspect]
     Indication: PAIN IN EXTREMITY
  3. MORPHINE [Concomitant]
     Indication: BACK PAIN
     Dosage: 60 MG, TID
     Route: 048
     Dates: start: 20070101
  4. MORPHINE [Concomitant]
     Indication: PAIN IN EXTREMITY
  5. KLONOPIN [Concomitant]
     Indication: SLEEP DISORDER
     Dosage: 0.5 MG, Q HS
     Route: 048
     Dates: start: 20080101

REACTIONS (2)
  - DRUG EFFECT DECREASED [None]
  - DYSGEUSIA [None]
